FAERS Safety Report 20920599 (Version 1)
Quarter: 2022Q2

REPORT INFORMATION
  Report Type: Spontaneous
  Country: US (occurrence: None)
  Receive Date: 20220606
  Receipt Date: 20220606
  Transmission Date: 20220721
  Serious: Yes (Hospitalization)
  Sender: FDA-Public Use
  Company Number: None

PATIENT
  Age: 54 Year
  Sex: Male
  Weight: 79 kg

DRUGS (2)
  1. LORAZEPAM [Suspect]
     Active Substance: LORAZEPAM
     Indication: Panic attack
     Dosage: 1 TAB ONCE PO?
     Route: 048
     Dates: start: 20220131, end: 20220131
  2. HYDROXYZINE HYDROCHLORIDE [Suspect]
     Active Substance: HYDROXYZINE HYDROCHLORIDE
     Indication: Pruritus
     Dosage: 1 TAB ONCE PO
     Route: 048
     Dates: start: 20220131, end: 20220131

REACTIONS (4)
  - Panic attack [None]
  - Rash [None]
  - Confusional state [None]
  - Sedation [None]

NARRATIVE: CASE EVENT DATE: 20220131
